FAERS Safety Report 16141059 (Version 2)
Quarter: 2019Q2

REPORT INFORMATION
  Report Type: Spontaneous
  Country: US (occurrence: US)
  Receive Date: 20190401
  Receipt Date: 20190402
  Transmission Date: 20190711
  Serious: Yes (Death, Life-Threatening, Other)
  Sender: FDA-Public Use
  Company Number: US-PFIZER INC-2019132949

PATIENT
  Age: 53 Year
  Sex: Male

DRUGS (9)
  1. VANCOMYCIN HCL [Suspect]
     Active Substance: VANCOMYCIN HYDROCHLORIDE
     Indication: FEBRILE NEUTROPENIA
     Dosage: UNK
  2. METRONIDAZOLE. [Concomitant]
     Active Substance: METRONIDAZOLE
     Indication: FEBRILE NEUTROPENIA
  3. CYCLOPHOSPHAMIDE. [Suspect]
     Active Substance: CYCLOPHOSPHAMIDE
     Indication: PLASMA CELL MYELOMA
     Dosage: HIGH-DOSE CYCLOPHOSPHAMIDE MOBILIZATION
  4. MELPHALAN. [Suspect]
     Active Substance: MELPHALAN
     Indication: PLASMA CELL MYELOMA
     Dosage: 140 MG/M2, CYCLIC
  5. CEFAZOLIN [Concomitant]
     Active Substance: CEFAZOLIN
     Indication: STREPTOCOCCAL BACTERAEMIA
  6. VANCOMYCIN HCL [Suspect]
     Active Substance: VANCOMYCIN HYDROCHLORIDE
     Indication: STREPTOCOCCAL BACTERAEMIA
  7. CEFAZOLIN [Concomitant]
     Active Substance: CEFAZOLIN
     Indication: FEBRILE NEUTROPENIA
     Dosage: UNK
  8. CYCLOPHOSPHAMIDE. [Suspect]
     Active Substance: CYCLOPHOSPHAMIDE
     Dosage: UNK, CYCLIC
  9. METRONIDAZOLE. [Concomitant]
     Active Substance: METRONIDAZOLE
     Indication: STREPTOCOCCAL BACTERAEMIA
     Dosage: UNK

REACTIONS (1)
  - Venoocclusive liver disease [Fatal]
